FAERS Safety Report 20438720 (Version 1)
Quarter: 2022Q1

REPORT INFORMATION
  Report Type: Spontaneous
  Country: US (occurrence: None)
  Receive Date: 20220204
  Receipt Date: 20220204
  Transmission Date: 20220423
  Serious: Yes (Other)
  Sender: FDA-Public Use
  Company Number: None

PATIENT
  Age: 46 Year
  Sex: Female
  Weight: 63.8 kg

DRUGS (7)
  1. FULVESTRANT [Suspect]
     Active Substance: FULVESTRANT
     Dosage: FREQUENCY : MONTHLY;?
     Route: 030
     Dates: start: 20211217, end: 20220114
  2. PALBOCICLIB [Concomitant]
     Active Substance: PALBOCICLIB
  3. LEUPROLIDE [Concomitant]
     Active Substance: LEUPROLIDE
  4. ONDANSETRON [Concomitant]
     Active Substance: ONDANSETRON
  5. MAGNESIUM OXIDE [Concomitant]
     Active Substance: MAGNESIUM OXIDE
  6. CALCIUM CARBONATE [Concomitant]
     Active Substance: CALCIUM CARBONATE
  7. CHOLECALCIFEROL [Concomitant]
     Active Substance: CHOLECALCIFEROL

REACTIONS (2)
  - Hepatic enzyme increased [None]
  - Product substitution issue [None]

NARRATIVE: CASE EVENT DATE: 20220114
